FAERS Safety Report 9519034 (Version 2)
Quarter: 2013Q3

REPORT INFORMATION
  Report Type: Spontaneous
  Country: US (occurrence: US)
  Receive Date: 20130912
  Receipt Date: 20130930
  Transmission Date: 20140515
  Serious: Yes (Other)
  Sender: FDA-Public Use
  Company Number: US-PFIZER INC-2013261582

PATIENT
  Age: 56 Year
  Sex: Female

DRUGS (2)
  1. ADVIL [Suspect]
     Indication: ARTHRALGIA
     Dosage: 2-4 TAB, 2 OR MORE/DAY (6 TO 8 TABLETS OF 200MG DIVIDED AS THREE-FOUR TIMES A DAY)
     Route: 048
  2. DILANTIN [Concomitant]
     Indication: CONVULSION
     Dosage: UNK

REACTIONS (2)
  - Overdose [Recovered/Resolved]
  - Conjunctival haemorrhage [Not Recovered/Not Resolved]
